FAERS Safety Report 6505423-2 (Version None)
Quarter: 2009Q4

REPORT INFORMATION
  Report Type: 
  Country: None (occurrence: None)
  Receive Date: 20091218
  Receipt Date: 20091210
  Transmission Date: 20100525
  Serious: Yes (Other)
  Sender: FDA-Public Use
  Company Number: SE-AMGEN-UK373905

PATIENT
  Sex: Female

DRUGS (7)
  1. NPLATE [Suspect]
     Indication: IDIOPATHIC THROMBOCYTOPENIC PURPURA
     Route: 058
  2. CORTISONE [Concomitant]
     Route: 065
  3. ATENOLOL [Concomitant]
     Route: 048
  4. PREDNISONE [Concomitant]
     Route: 065
  5. CYANOCOBALAMIN [Concomitant]
     Route: 048
  6. LEVOTHYROXINE SODIUM [Concomitant]
     Route: 048
  7. ANTIHYPERTENSIVE MEDICATION NOS [Concomitant]
     Route: 048

REACTIONS (1)
  - DEEP VEIN THROMBOSIS [None]
